FAERS Safety Report 10511962 (Version 3)
Quarter: 2015Q1

REPORT INFORMATION
  Report Type: Spontaneous
  Country: US (occurrence: US)
  Receive Date: 20141010
  Receipt Date: 20150219
  Transmission Date: 20150720
  Serious: Yes (Other)
  Sender: FDA-Public Use
  Company Number: US-PFIZER INC-2014274670

PATIENT
  Age: 13 Month
  Sex: Female
  Weight: 9 kg

DRUGS (4)
  1. LITTLE REMEDIES FOR FEVERS [Concomitant]
     Indication: PYREXIA
     Dosage: 1.25 ML, UNK
     Dates: start: 20140903
  2. BABY ORAJEL TEETHING MEDICINE [Suspect]
     Active Substance: BENZOCAINE
     Dosage: UNK
  3. INFANTS ADVIL CONCENTRATED DROPS [Suspect]
     Active Substance: IBUPROFEN
     Indication: OROPHARYNGEAL PAIN
     Dosage: 1.25 ML, UNK
     Dates: start: 20140919, end: 20141001
  4. INFANTS ADVIL CONCENTRATED DROPS [Suspect]
     Active Substance: IBUPROFEN
     Indication: PYREXIA
     Dosage: 0.625 ML, UNK
     Route: 048

REACTIONS (10)
  - Vomiting [Unknown]
  - Local swelling [Unknown]
  - Head deformity [Unknown]
  - Hypoaesthesia [Unknown]
  - Moaning [Unknown]
  - Choking [Unknown]
  - Seizure [Unknown]
  - Eye movement disorder [Unknown]
  - Pyrexia [Unknown]
  - Musculoskeletal stiffness [Unknown]

NARRATIVE: CASE EVENT DATE: 20140919
